FAERS Safety Report 17524037 (Version 1)
Quarter: 2020Q1

REPORT INFORMATION
  Report Type: Spontaneous
  Country: US (occurrence: US)
  Receive Date: 20200310
  Receipt Date: 20200310
  Transmission Date: 20200409
  Serious: No
  Sender: FDA-Public Use
  Company Number: US-NABRIVA THERAPEUTICS IRELAND DAC-US-2020NAB000003

PATIENT
  Sex: Male

DRUGS (4)
  1. XENLETA [Suspect]
     Active Substance: LEFAMULIN ACETATE
     Indication: MYCOPLASMA INFECTION
  2. MINOCYCLINE [Concomitant]
     Active Substance: MINOCYCLINE HYDROCHLORIDE
     Indication: ARTHRITIS BACTERIAL
     Dosage: 200 MG, QD
     Route: 065
  3. MINOCYCLINE [Concomitant]
     Active Substance: MINOCYCLINE HYDROCHLORIDE
     Indication: MYCOPLASMA INFECTION
  4. XENLETA [Suspect]
     Active Substance: LEFAMULIN ACETATE
     Indication: ARTHRITIS BACTERIAL
     Dosage: 600 MG, BID
     Route: 048
     Dates: start: 201909

REACTIONS (1)
  - Product use in unapproved indication [Unknown]
